FAERS Safety Report 7930619-2 (Version None)
Quarter: 2011Q4

REPORT INFORMATION
  Report Type: 
  Country: None (occurrence: None)
  Receive Date: 20111121
  Receipt Date: 20111117
  Transmission Date: 20120403
  Serious: Yes (Other)
  Sender: FDA-Public Use
  Company Number: US-PFIZER INC-2011282856

PATIENT
  Sex: Female
  Weight: 90.703 kg

DRUGS (3)
  1. HALCION [Suspect]
     Indication: SLEEP DISORDER
     Dosage: 0.25 MG, DAILY
     Route: 048
     Dates: start: 20110901, end: 20111001
  2. LEXAPRO [Concomitant]
     Indication: ANXIETY
  3. LEXAPRO [Concomitant]
     Indication: DEPRESSION
     Dosage: 20 MG, DAILY

REACTIONS (3)
  - THINKING ABNORMAL [None]
  - CONFUSIONAL STATE [None]
  - MENTAL IMPAIRMENT [None]
